FAERS Safety Report 8340955-6 (Version None)
Quarter: 2012Q1

REPORT INFORMATION
  Report Type: 
  Country: None (occurrence: None)
  Receive Date: 20120330
  Receipt Date: 20110202
  Transmission Date: 20120608
  Serious: Yes (Other)
  Sender: FDA-Public Use
  Company Number: PHHY2011US09009

PATIENT
  Sex: Male

DRUGS (5)
  1. BENAZEPRIL HYDROCHLORIDE [Concomitant]
  2. STALEVO 100 [Concomitant]
  3. EXELON [Suspect]
     Indication: DEMENTIA ALZHEIMER'S TYPE
     Dosage: 4.6;9.5 MG, QD, TRANSDERMAL
     Route: 062
     Dates: end: 20090401
  4. NEXIUM [Concomitant]
  5. PROPRANOLOL [Concomitant]

REACTIONS (1)
  - HALLUCINATION [None]
